FAERS Safety Report 13485497 (Version 8)
Quarter: 2022Q2

REPORT INFORMATION
  Report Type: Spontaneous
  Country: US (occurrence: US)
  Receive Date: 20170425
  Receipt Date: 20220627
  Transmission Date: 20220721
  Serious: No
  Sender: FDA-Public Use
  Company Number: US-PFIZER INC-2016035937

PATIENT
  Age: 59 Year
  Sex: Male

DRUGS (14)
  1. LYRICA [Suspect]
     Active Substance: PREGABALIN
     Indication: Cervical radiculopathy
     Dosage: 75 MG, 3X/DAY
     Route: 048
  2. LYRICA [Suspect]
     Active Substance: PREGABALIN
     Indication: Polyneuropathy
     Dosage: 150 MG, 3X/DAY
     Route: 048
  3. LYRICA [Suspect]
     Active Substance: PREGABALIN
     Indication: Nervous system disorder
  4. LYRICA [Suspect]
     Active Substance: PREGABALIN
     Indication: Lyme disease
  5. LYRICA [Suspect]
     Active Substance: PREGABALIN
     Indication: Pain
  6. LYRICA [Suspect]
     Active Substance: PREGABALIN
     Indication: Lumbar radiculopathy
  7. ATIVAN [Concomitant]
     Active Substance: LORAZEPAM
     Dosage: UNK
  8. FLUTICASONE [Concomitant]
     Active Substance: FLUTICASONE
     Dosage: UNK
  9. LISINOPRIL [Concomitant]
     Active Substance: LISINOPRIL
     Dosage: UNK
  10. PANTOPRAZOLE [Concomitant]
     Active Substance: PANTOPRAZOLE
     Dosage: UNK
  11. PROAIR HFA [Concomitant]
     Active Substance: ALBUTEROL SULFATE
     Dosage: UNK
  12. VIAGRA [Concomitant]
     Active Substance: SILDENAFIL CITRATE
     Dosage: UNK
  13. HYDROCODONE-ACET [Concomitant]
     Dosage: UNK
  14. CIMETIDINE [Concomitant]
     Active Substance: CIMETIDINE
     Dosage: UNK

REACTIONS (4)
  - Product dose omission issue [Unknown]
  - Feeling abnormal [Unknown]
  - Illness [Unknown]
  - Insomnia [Unknown]
